FAERS Safety Report 9163217 (Version 1)
Quarter: 2013Q1

REPORT INFORMATION
  Report Type: Spontaneous
  Country: CZ (occurrence: CZ)
  Receive Date: 20130314
  Receipt Date: 20130314
  Transmission Date: 20140127
  Serious: Yes (Life-Threatening, Other)
  Sender: FDA-Public Use
  Company Number: CZ-GLAXOSMITHKLINE-B0586083A

PATIENT
  Age: 14 Year
  Sex: Female
  Weight: 52 kg

DRUGS (4)
  1. AVAMYS [Suspect]
     Indication: RHINITIS ALLERGIC
     Route: 045
     Dates: start: 20090505, end: 20090519
  2. XYZAL [Concomitant]
     Route: 048
  3. UNKNOWN DRUG [Concomitant]
  4. TERBUTALINE [Concomitant]
     Indication: ASTHMA
     Route: 065

REACTIONS (10)
  - Cushing^s syndrome [Recovered/Resolved]
  - Cushingoid [Unknown]
  - Hypothalamo-pituitary disorder [Unknown]
  - Skin striae [Unknown]
  - Hair growth abnormal [Unknown]
  - Acne [Unknown]
  - Fatigue [Unknown]
  - Weight increased [Unknown]
  - Headache [Unknown]
  - Nausea [Unknown]
